FAERS Safety Report 6068320-5 (Version None)
Quarter: 2009Q1

REPORT INFORMATION
  Report Type: 
  Country: None (occurrence: None)
  Receive Date: 20090206
  Receipt Date: 20090201
  Transmission Date: 20090719
  Serious: Yes (Hospitalization)
  Sender: FDA-Public Use
  Company Number: CN-JNJFOC-20090104832

PATIENT
  Sex: Female
  Weight: 3.5 kg

DRUGS (3)
  1. ANTUSS INFANTS DECONGESTANT + COUGH [Suspect]
     Indication: NASAL CONGESTION
     Route: 048
  2. MULTIVITAMINS W/ ENTEROCOCCUS FAECIUM [Concomitant]
  3. BACILLUS SUBTILIS [Concomitant]
     Indication: GASTRIC DISORDER

REACTIONS (3)
  - ABDOMINAL DISTENSION [None]
  - DIET REFUSAL [None]
  - FEEDING DISORDER NEONATAL [None]
